FAERS Safety Report 7001942-3 (Version None)
Quarter: 2010Q3

REPORT INFORMATION
  Report Type: 
  Country: None (occurrence: None)
  Receive Date: 20100920
  Receipt Date: 20100916
  Transmission Date: 20110219
  Serious: Yes (Death)
  Sender: FDA-Public Use
  Company Number: A0853002A

PATIENT
  Age: 79 Year
  Sex: Female

DRUGS (2)
  1. PROMACTA [Suspect]
     Dosage: 15MG PER DAY
     Dates: start: 20091015, end: 20091030
  2. IMMUNE GLOBULIN INTRAVENOUS (HUMAN) [Concomitant]
     Indication: IDIOPATHIC THROMBOCYTOPENIC PURPURA

REACTIONS (3)
  - DEATH [None]
  - DRUG INEFFECTIVE [None]
  - NAUSEA [None]
